FAERS Safety Report 13740712 (Version 1)
Quarter: 2017Q3

REPORT INFORMATION
  Report Type: Report from Study
  Country: JP (occurrence: JP)
  Receive Date: 20170711
  Receipt Date: 20170711
  Transmission Date: 20171127
  Serious: Yes (Hospitalization, Disabling)
  Sender: FDA-Public Use
  Company Number: JP-AMGEN-JPNCT2015021316

PATIENT
  Age: 37 Year
  Sex: Female
  Weight: 49 kg

DRUGS (66)
  1. ROMIPLOSTIM [Suspect]
     Active Substance: ROMIPLOSTIM
     Dosage: 3 MUG/KG, QWK
     Route: 058
     Dates: start: 20120609
  2. SUPRECUR [Concomitant]
     Active Substance: BUSERELIN
     Indication: PROPHYLAXIS
     Dosage: UNK
     Route: 065
  3. MUSCULAX [Concomitant]
     Active Substance: VECURONIUM BROMIDE
     Indication: CEREBRAL HAEMORRHAGE
     Dosage: UNK
     Route: 042
  4. SOLACET F [Concomitant]
     Indication: PROPHYLAXIS
     Dosage: UNK
     Route: 041
  5. PRECEDEX [Concomitant]
     Active Substance: DEXMEDETOMIDINE HYDROCHLORIDE
     Indication: PROPHYLAXIS
     Dosage: UNK
     Route: 042
  6. CEFAMEZIN ALPHA [Concomitant]
     Active Substance: CEFAZOLIN SODIUM
     Indication: PROPHYLAXIS
     Dosage: UNK
     Route: 065
  7. DIOVAN [Concomitant]
     Active Substance: VALSARTAN
     Indication: CEREBRAL HAEMORRHAGE
     Dosage: UNK
     Route: 048
  8. ROMIPLOSTIM [Suspect]
     Active Substance: ROMIPLOSTIM
     Dosage: 3 MUG/KG, UNK
     Route: 058
     Dates: start: 20120825
  9. PREDONINE [Concomitant]
     Active Substance: PREDNISOLONE
     Dosage: 40 MG, UNK
     Route: 048
     Dates: start: 20120621, end: 20120702
  10. PREDONINE [Concomitant]
     Active Substance: PREDNISOLONE
     Dosage: 30 MG, UNK
     Route: 048
     Dates: start: 20120724, end: 20120806
  11. PREDONINE [Concomitant]
     Active Substance: PREDNISOLONE
     Dosage: 22.5 MG, UNK
     Route: 048
     Dates: start: 20120823, end: 20120907
  12. VITAMIN C [Concomitant]
     Active Substance: ASCORBIC ACID
     Indication: PROPHYLAXIS
     Dosage: UNK
     Route: 065
  13. DORMICUM [Concomitant]
     Indication: PROPHYLAXIS
     Dosage: UNK
     Route: 065
  14. PREDONINE [Concomitant]
     Active Substance: PREDNISOLONE
     Dosage: 35 MG, UNK
     Route: 048
     Dates: start: 20120703, end: 20120723
  15. PREDONINE [Concomitant]
     Active Substance: PREDNISOLONE
     Dosage: 17.5 MG, UNK
     Route: 048
     Dates: start: 20120923, end: 20121011
  16. VENILON [Concomitant]
     Active Substance: HUMAN IMMUNOGLOBULIN G
     Dosage: 15 G, UNK
     Route: 042
     Dates: start: 20120607, end: 20120611
  17. GLYCEREB [Concomitant]
     Indication: CEREBRAL HAEMORRHAGE
     Dosage: UNK
     Route: 041
  18. CEFAZOLIN SODIUM. [Concomitant]
     Active Substance: CEFAZOLIN SODIUM
     Indication: CEREBRAL HAEMORRHAGE
     Dosage: UNK
     Route: 065
  19. SALIPEX [Concomitant]
     Indication: CEREBRAL HAEMORRHAGE
     Dosage: UNK
     Route: 065
  20. FOSMICIN [Concomitant]
     Active Substance: FOSFOMYCIN CALCIUM
     Indication: MENINGITIS
     Dosage: UNK
     Route: 065
  21. ESLAX [Concomitant]
     Active Substance: ROCURONIUM BROMIDE
     Indication: PROPHYLAXIS
     Dosage: UNK
     Route: 042
  22. ROPION [Concomitant]
     Active Substance: FLURBIPROFEN AXETIL
     Indication: PROPHYLAXIS
     Dosage: UNK
     Route: 042
  23. ZINC SULFATE [Concomitant]
     Active Substance: ZINC SULFATE\ZINC SULFATE ANHYDROUS
     Indication: PROPHYLAXIS
     Dosage: UNK
     Route: 065
  24. MIYA-BM [Concomitant]
     Active Substance: CLOSTRIDIUM BUTYRICUM SPORES STRAIN M-55
     Indication: PROPHYLAXIS
     Dosage: UNK
     Route: 048
  25. ROMIPLOSTIM [Suspect]
     Active Substance: ROMIPLOSTIM
     Dosage: 2 MUG/KG, QWK
     Route: 058
     Dates: start: 20120428
  26. ROMIPLOSTIM [Suspect]
     Active Substance: ROMIPLOSTIM
     Dosage: 4 MUG/KG, QWK
     Route: 058
     Dates: start: 20120630
  27. PREDONINE [Concomitant]
     Active Substance: PREDNISOLONE
     Dosage: 12.5 MG, UNK
     Route: 048
     Dates: start: 20121026, end: 20121112
  28. MEROPEN [Concomitant]
     Active Substance: MEROPENEM
     Indication: MENINGITIS
     Dosage: UNK
     Route: 041
  29. LAXOBERON [Concomitant]
     Active Substance: SODIUM PICOSULFATE
     Indication: PROPHYLAXIS
     Dosage: UNK
     Route: 048
  30. CALONAL [Concomitant]
     Active Substance: ACETAMINOPHEN
     Indication: MENINGITIS
     Dosage: UNK
     Route: 048
  31. ROMIPLOSTIM [Suspect]
     Active Substance: ROMIPLOSTIM
     Dosage: 1 MUG/KG, QWK
     Route: 058
     Dates: start: 20120908
  32. TAKEPRON [Concomitant]
     Active Substance: LANSOPRAZOLE
     Indication: PROPHYLAXIS
     Dosage: UNK
     Route: 065
  33. VANCOMYCIN [Concomitant]
     Active Substance: VANCOMYCIN
     Indication: MENINGITIS
     Dosage: UNK
     Route: 065
  34. ZYVOX [Concomitant]
     Active Substance: LINEZOLID
     Indication: MENINGITIS
     Dosage: UNK
     Route: 041
  35. SOLDEM 3A [Concomitant]
     Active Substance: CARBOHYDRATES\POTASSIUM CHLORIDE\SODIUM CHLORIDE\SODIUM LACTATE
     Indication: PROPHYLAXIS
     Dosage: UNK
     Route: 041
  36. BAKTAR [Concomitant]
     Active Substance: SULFAMETHOXAZOLE\TRIMETHOPRIM
     Indication: PROPHYLAXIS
     Dosage: UNK
     Route: 048
  37. EXCEGRAN [Concomitant]
     Active Substance: ZONISAMIDE
     Indication: CEREBRAL HAEMORRHAGE
  38. PREDONINE [Concomitant]
     Active Substance: PREDNISOLONE
     Indication: IMMUNE THROMBOCYTOPENIC PURPURA
     Dosage: 50 MG, UNK
     Route: 048
     Dates: start: 20120303, end: 20120606
  39. PREDONINE [Concomitant]
     Active Substance: PREDNISOLONE
     Dosage: 45 MG, UNK
     Route: 048
     Dates: start: 20120607, end: 20120620
  40. PREDONINE [Concomitant]
     Active Substance: PREDNISOLONE
     Dosage: 25 MG, UNK
     Route: 048
     Dates: start: 20120807, end: 20120822
  41. PREDONINE [Concomitant]
     Active Substance: PREDNISOLONE
     Dosage: 15.0 MG, UNK
     Route: 048
     Dates: start: 20121012, end: 20121025
  42. PREDONINE [Concomitant]
     Active Substance: PREDNISOLONE
     Dosage: 5.0 MG, UNK
     Route: 048
     Dates: start: 20130219, end: 20130412
  43. VENILON [Concomitant]
     Active Substance: HUMAN IMMUNOGLOBULIN G
     Indication: IMMUNE THROMBOCYTOPENIC PURPURA
     Dosage: 15 G, UNK
     Route: 042
     Dates: start: 20120329, end: 20120331
  44. DIPRIVAN [Concomitant]
     Active Substance: PROPOFOL
     Indication: CEREBRAL HAEMORRHAGE
     Dosage: UNK
     Route: 042
  45. TELEMINSOFT [Concomitant]
     Active Substance: BISACODYL
     Indication: PROPHYLAXIS
     Dosage: UNK
     Route: 054
  46. ROCEPHIN [Concomitant]
     Active Substance: CEFTRIAXONE SODIUM
     Indication: MENINGITIS
     Dosage: UNK
     Route: 042
  47. ROMIPLOSTIM [Suspect]
     Active Substance: ROMIPLOSTIM
     Dosage: 2 MUG/KG, UNK
     Route: 058
     Dates: start: 20120901
  48. ROMIPLOSTIM [Suspect]
     Active Substance: ROMIPLOSTIM
     Dosage: 5 MUG/KG, QWK
     Route: 058
     Dates: start: 20121201
  49. HORIZON [Concomitant]
     Active Substance: DIAZEPAM
     Indication: PROPHYLAXIS
     Dosage: UNK
     Route: 065
  50. ZOSYN [Concomitant]
     Active Substance: PIPERACILLIN SODIUM\TAZOBACTAM SODIUM
     Indication: PROPHYLAXIS
     Dosage: UNK
     Route: 042
  51. MAINTATE [Concomitant]
     Active Substance: BISOPROLOL FUMARATE
     Indication: CEREBRAL HAEMORRHAGE
     Dosage: UNK
     Route: 048
  52. ROMIPLOSTIM [Suspect]
     Active Substance: ROMIPLOSTIM
     Indication: IMMUNE THROMBOCYTOPENIC PURPURA
     Dosage: 1 MUG/KG, QWK
     Route: 058
     Dates: start: 20120323
  53. ROMIPLOSTIM [Suspect]
     Active Substance: ROMIPLOSTIM
     Dosage: 0.5 MUG/KG, UNK
     Route: 058
     Dates: start: 20130112
  54. PREDONINE [Concomitant]
     Active Substance: PREDNISOLONE
     Dosage: 20 MG, UNK
     Route: 048
     Dates: start: 20120908, end: 20120922
  55. PREDONINE [Concomitant]
     Active Substance: PREDNISOLONE
     Dosage: 10.0 MG, UNK
     Route: 048
     Dates: start: 20121113, end: 20121126
  56. PREDONINE [Concomitant]
     Active Substance: PREDNISOLONE
     Dosage: 7.5 MG, UNK
     Route: 048
     Dates: start: 20121127, end: 20130128
  57. PREDONINE [Concomitant]
     Active Substance: PREDNISOLONE
     Dosage: 6.0 MG, UNK
     Route: 048
     Dates: start: 20130129, end: 20130218
  58. CLAFORAN [Concomitant]
     Active Substance: CEFOTAXIME SODIUM
     Indication: CEREBRAL HAEMORRHAGE
     Dosage: UNK
     Route: 065
  59. FENTANYL. [Concomitant]
     Active Substance: FENTANYL
     Indication: CEREBRAL HAEMORRHAGE
     Dosage: UNK
     Route: 065
  60. ZITHROMAC [Concomitant]
     Active Substance: AZITHROMYCIN DIHYDRATE
     Indication: MENINGITIS
     Dosage: UNK
     Route: 041
  61. OMEPRAL [Concomitant]
     Active Substance: OMEPRAZOLE
     Indication: PROPHYLAXIS
     Dosage: UNK
     Route: 065
  62. ALEVIATIN [Concomitant]
     Active Substance: PHENYTOIN SODIUM
     Indication: PROPHYLAXIS
     Dosage: UNK
     Route: 065
  63. BFLUID [Concomitant]
     Active Substance: AMINO ACIDS\DEXTROSE\ELECTROLYTES NOS\VITAMINS
     Indication: PROPHYLAXIS
     Dosage: UNK
     Route: 041
  64. PROPOFOL. [Concomitant]
     Active Substance: PROPOFOL
     Indication: PROPHYLAXIS
     Dosage: UNK
     Route: 042
  65. ASPARA POTASSIUM [Concomitant]
     Active Substance: POTASSIUM ASPARTATE
     Indication: PROPHYLAXIS
     Dosage: UNK
     Route: 065
  66. BIOFERMIN R [Concomitant]
     Active Substance: BACILLUS SUBTILIS\LACTOBACILLUS ACIDOPHILUS\STREPTOCOCCUS FAECAIS
     Indication: PROPHYLAXIS
     Dosage: UNK
     Route: 048

REACTIONS (4)
  - Femur fracture [Recovered/Resolved]
  - Tinea pedis [Recovered/Resolved]
  - Meningitis [Recovered/Resolved]
  - Meningitis [Recovered/Resolved]

NARRATIVE: CASE EVENT DATE: 20120512
